FAERS Safety Report 11701585 (Version 1)
Quarter: 2015Q4

REPORT INFORMATION
  Report Type: Report from Study
  Country: JP (occurrence: JP)
  Receive Date: 20151105
  Receipt Date: 20151105
  Transmission Date: 20160304
  Serious: No
  Sender: FDA-Public Use
  Company Number: JP-AEGERION PHARMACEUTICAL INC.-AEGR001588

PATIENT

DRUGS (1)
  1. METRELEPTIN SHIONOGI [Suspect]
     Active Substance: METRELEPTIN
     Indication: PRODUCT USED FOR UNKNOWN INDICATION
     Dosage: 1 DF, QD
     Route: 058

REACTIONS (7)
  - Upper respiratory tract infection [Recovered/Resolved]
  - Constipation [Not Recovered/Not Resolved]
  - Hepatic function abnormal [Not Recovered/Not Resolved]
  - Glucose tolerance decreased [Not Recovered/Not Resolved]
  - Bronchitis [Recovered/Resolved]
  - Rhinitis [Recovered/Resolved]
  - Irritable bowel syndrome [Recovered/Resolved]
